FAERS Safety Report 23719771 (Version 2)
Quarter: 2024Q2

REPORT INFORMATION
  Report Type: Report from Study
  Country: US (occurrence: US)
  Receive Date: 20240408
  Receipt Date: 20240423
  Transmission Date: 20240717
  Serious: Yes (Hospitalization)
  Sender: FDA-Public Use
  Company Number: US-ARGENX-2023-ARGX-US002229

PATIENT

DRUGS (3)
  1. VYVGART [Suspect]
     Active Substance: EFGARTIGIMOD ALFA-FCAB
     Indication: Myasthenia gravis
     Dosage: UNK
     Route: 042
     Dates: start: 202309
  2. VYVGART [Suspect]
     Active Substance: EFGARTIGIMOD ALFA-FCAB
     Dosage: UNK
     Route: 042
     Dates: start: 20230508
  3. HUMAN IMMUNOGLOBULIN G [Concomitant]
     Active Substance: HUMAN IMMUNOGLOBULIN G
     Indication: Product used for unknown indication
     Route: 042

REACTIONS (15)
  - Hip arthroplasty [Unknown]
  - Headache [Recovered/Resolved]
  - Muscular weakness [Unknown]
  - Pain in extremity [Unknown]
  - Limb discomfort [Not Recovered/Not Resolved]
  - Pain in extremity [Unknown]
  - Muscle spasms [Unknown]
  - Gait disturbance [Not Recovered/Not Resolved]
  - Arthritis [Not Recovered/Not Resolved]
  - Eyelid ptosis [Not Recovered/Not Resolved]
  - Swelling of eyelid [Not Recovered/Not Resolved]
  - Fall [Not Recovered/Not Resolved]
  - Muscle spasms [Unknown]
  - Pain in extremity [Unknown]
  - Gait disturbance [Not Recovered/Not Resolved]

NARRATIVE: CASE EVENT DATE: 20230612
